FAERS Safety Report 7010324-X (Version None)
Quarter: 2010Q3

REPORT INFORMATION
  Report Type: 
  Country: None (occurrence: None)
  Receive Date: 20100923
  Receipt Date: 20100916
  Transmission Date: 20110219
  Serious: Yes (Disabling)
  Sender: FDA-Public Use
  Company Number: B0674827A

PATIENT
  Sex: Male

DRUGS (8)
  1. ACYCLOVIR SODIUM [Suspect]
     Dosage: 1200MG PER DAY
     Route: 048
  2. RANITIDINE [Suspect]
     Dosage: 300MG PER DAY
     Route: 048
  3. COTRIM [Suspect]
     Route: 048
  4. CEPHALEXIN [Suspect]
     Dosage: 500MG PER DAY
     Route: 048
  5. AMLODIPINE [Suspect]
     Dosage: 10MG PER DAY
     Route: 048
  6. LOSARTAN POTASSIUM [Suspect]
     Dosage: 50MG PER DAY
     Route: 048
  7. MIRTAZAPINE [Suspect]
     Dosage: 45MG PER DAY
     Route: 048
  8. FOLIC ACID [Concomitant]
     Route: 048

REACTIONS (3)
  - ANAEMIA [None]
  - ARTHRALGIA [None]
  - MYALGIA [None]
